FAERS Safety Report 5075648-4 (Version None)
Quarter: 2006Q3

REPORT INFORMATION
  Report Type: 
  Country: None (occurrence: None)
  Receive Date: 20060807
  Receipt Date: 20060602
  Transmission Date: 20061208
  Serious: Yes (Death)
  Sender: FDA-Public Use
  Company Number: 2532

PATIENT
  Age: 17 Year
  Sex: Male
  Weight: 50 kg

DRUGS (2)
  1. AMNESTEEM [Suspect]
     Indication: ACNE CONGLOBATA
     Dosage: 10 MG, QAM, ORAL
     Route: 048
     Dates: start: 20060327, end: 20060529
  2. AMNESTEEM [Suspect]
     Indication: ACNE CONGLOBATA
     Dosage: 40 MG, HS, ORAL
     Route: 048
     Dates: start: 20060327, end: 20060529

REACTIONS (3)
  - COMPLETED SUICIDE [None]
  - FACE INJURY [None]
  - GUN SHOT WOUND [None]
